FAERS Safety Report 8383868-6 (Version None)
Quarter: 2012Q1

REPORT INFORMATION
  Report Type: 
  Country: None (occurrence: None)
  Receive Date: 20120323
  Receipt Date: 20110329
  Transmission Date: 20120608
  Serious: Yes (Other)
  Sender: FDA-Public Use
  Company Number: 163-21880-11030780

PATIENT
  Age: 71 Year
  Sex: Female

DRUGS (3)
  1. LASIX [Concomitant]
  2. DEXAMETHASONE [Suspect]
     Indication: MULTIPLE MYELOMA
     Dosage: 20 MG, DAYS 1-4, 9-12, 17-21
     Dates: start: 20101130, end: 20110321
  3. REVLIMID [Suspect]
     Indication: MULTIPLE MYELOMA
     Dosage: 25 MG, DAILY FOR 21 DAYS EVERY MONTH, PO
     Route: 048
     Dates: start: 20100928, end: 20110314

REACTIONS (1)
  - HERPES ZOSTER [None]
